FAERS Safety Report 22733361 (Version 2)
Quarter: 2024Q1

REPORT INFORMATION
  Report Type: Spontaneous
  Country: US (occurrence: US)
  Receive Date: 20230720
  Receipt Date: 20240117
  Transmission Date: 20240410
  Serious: No
  Sender: FDA-Public Use
  Company Number: US-NOVOPROD-1066904

PATIENT

DRUGS (1)
  1. OZEMPIC [Suspect]
     Active Substance: SEMAGLUTIDE
     Indication: Product used for unknown indication
     Dosage: 27 CC (BEFORE STEROID USE), THEN 13.5 CC TWICE WEEKLY, THEN 20 CC TWICE WEEKLY
     Route: 058
     Dates: start: 202203

REACTIONS (5)
  - Bronchitis [Unknown]
  - Weight increased [Not Recovered/Not Resolved]
  - Off label use [Unknown]
  - Drug ineffective [Not Recovered/Not Resolved]
  - Product counterfeit [Unknown]
